FAERS Safety Report 13740712 (Version 2)
Quarter: 2018Q2

REPORT INFORMATION
  Report Type: Report from Study
  Country: JP (occurrence: JP)
  Receive Date: 20170711
  Receipt Date: 20180601
  Transmission Date: 20180711
  Serious: Yes (Hospitalization, Disabling)
  Sender: FDA-Public Use
  Company Number: JP-AMGEN-JPNCT2015021316

PATIENT
  Age: 37 Year
  Sex: Female
  Weight: 49 kg

DRUGS (67)
  1. ROMIPLOSTIM [Suspect]
     Active Substance: ROMIPLOSTIM
     Indication: IMMUNE THROMBOCYTOPENIC PURPURA
     Dosage: 1 MUG/KG, QWK
     Route: 058
     Dates: start: 20120323, end: 20120421
  2. ROMIPLOSTIM [Suspect]
     Active Substance: ROMIPLOSTIM
     Dosage: 2 MUG/KG, QWK
     Route: 058
     Dates: start: 20120428, end: 20120602
  3. ROMIPLOSTIM [Suspect]
     Active Substance: ROMIPLOSTIM
     Dosage: 0.5 MUG/KG, QWK
     Route: 058
     Dates: start: 20121201, end: 20121229
  4. ROMIPLOSTIM [Suspect]
     Active Substance: ROMIPLOSTIM
     Dosage: 0.5 MUG/KG, UNK
     Route: 058
     Dates: start: 20130112
  5. PREDONINE [Suspect]
     Active Substance: PREDNISOLONE
     Dosage: 45 MG, UNK
     Route: 048
     Dates: start: 20120607, end: 20120620
  6. PREDONINE [Suspect]
     Active Substance: PREDNISOLONE
     Dosage: 40 MG, UNK
     Route: 048
     Dates: start: 20120621, end: 20120702
  7. PREDONINE [Suspect]
     Active Substance: PREDNISOLONE
     Dosage: 12.5 MG, UNK
     Route: 048
     Dates: start: 20121026, end: 20121112
  8. MUSCULAX [Concomitant]
     Active Substance: VECURONIUM BROMIDE
     Indication: CEREBRAL HAEMORRHAGE
     Dosage: UNK
     Route: 042
  9. TAKEPRON [Concomitant]
     Active Substance: LANSOPRAZOLE
     Indication: PROPHYLAXIS
     Dosage: UNK
     Route: 065
  10. SOLDEM 3A [Concomitant]
     Active Substance: CARBOHYDRATES\POTASSIUM CHLORIDE\SODIUM CHLORIDE\SODIUM LACTATE
     Indication: PROPHYLAXIS
     Dosage: UNK
     Route: 041
  11. DORMICUM [Concomitant]
     Indication: PROPHYLAXIS
     Dosage: UNK
     Route: 065
  12. BFLUID [Concomitant]
     Active Substance: AMINO ACIDS\DEXTROSE\ELECTROLYTES NOS\VITAMINS
     Indication: PROPHYLAXIS
     Dosage: UNK
     Route: 041
  13. ZOSYN [Concomitant]
     Active Substance: PIPERACILLIN SODIUM\TAZOBACTAM SODIUM
     Indication: PROPHYLAXIS
     Dosage: UNK
     Route: 042
  14. DIOVAN [Concomitant]
     Active Substance: VALSARTAN
     Indication: CEREBRAL HAEMORRHAGE
     Dosage: UNK
     Route: 048
  15. LAXOBERON [Concomitant]
     Active Substance: SODIUM PICOSULFATE
     Indication: PROPHYLAXIS
     Dosage: UNK
     Route: 048
  16. CALONAL [Concomitant]
     Active Substance: ACETAMINOPHEN
     Indication: MENINGITIS
     Dosage: UNK
     Route: 048
  17. ROCEPHIN [Concomitant]
     Active Substance: CEFTRIAXONE SODIUM
     Indication: MENINGITIS
     Dosage: UNK
     Route: 042
  18. ROMIPLOSTIM [Suspect]
     Active Substance: ROMIPLOSTIM
     Dosage: 3 MUG/KG, UNK
     Route: 058
     Dates: start: 20120825, end: 20120825
  19. SOLACET F [Concomitant]
     Indication: PROPHYLAXIS
     Dosage: UNK
     Route: 041
  20. PROPOFOL. [Concomitant]
     Active Substance: PROPOFOL
     Indication: PROPHYLAXIS
     Dosage: UNK
     Route: 042
  21. EXCEGRAN [Concomitant]
     Active Substance: ZONISAMIDE
     Indication: PROPHYLAXIS
  22. ROMIPLOSTIM [Suspect]
     Active Substance: ROMIPLOSTIM
     Dosage: 3 MUG/KG, QWK
     Route: 058
     Dates: start: 20120609, end: 20120623
  23. ROMIPLOSTIM [Suspect]
     Active Substance: ROMIPLOSTIM
     Dosage: 2 MUG/KG, UNK
     Route: 058
     Dates: start: 20120901, end: 20120901
  24. PREDONINE [Suspect]
     Active Substance: PREDNISOLONE
     Dosage: 5.0 MG, UNK
     Route: 048
     Dates: start: 20130219, end: 20130412
  25. VENILON [Concomitant]
     Active Substance: HUMAN IMMUNOGLOBULIN G
     Dosage: 15 G, UNK
     Route: 042
     Dates: start: 20120607, end: 20120611
  26. SUPRECUR [Concomitant]
     Active Substance: BUSERELIN
     Indication: PROPHYLAXIS
     Dosage: UNK
     Route: 065
  27. CEFAZOLIN SODIUM. [Concomitant]
     Active Substance: CEFAZOLIN SODIUM
     Indication: CEREBRAL HAEMORRHAGE
     Dosage: UNK
     Route: 065
  28. FENTANYL. [Concomitant]
     Active Substance: FENTANYL
     Indication: CEREBRAL HAEMORRHAGE
     Dosage: UNK
     Route: 065
  29. OMEPRAL [Concomitant]
     Active Substance: OMEPRAZOLE
     Indication: PROPHYLAXIS
     Dosage: UNK
     Route: 065
  30. HORIZON [Concomitant]
     Active Substance: DIAZEPAM
     Indication: PROPHYLAXIS
     Dosage: UNK
     Route: 065
  31. EXCEGRAN [Concomitant]
     Active Substance: ZONISAMIDE
     Indication: CEREBRAL HAEMORRHAGE
     Dosage: UNK
  32. PREDONINE [Suspect]
     Active Substance: PREDNISOLONE
     Dosage: 7.5 MG, UNK
     Route: 048
     Dates: start: 20121127, end: 20130128
  33. ROPION [Concomitant]
     Active Substance: FLURBIPROFEN AXETIL
     Indication: PROPHYLAXIS
     Dosage: UNK
     Route: 042
  34. BAKTAR [Concomitant]
     Active Substance: SULFAMETHOXAZOLE\TRIMETHOPRIM
     Indication: PROPHYLAXIS
     Dosage: UNK
     Route: 048
  35. BIOFERMIN R [Concomitant]
     Active Substance: BACILLUS SUBTILIS\LACTOBACILLUS ACIDOPHILUS\STREPTOCOCCUS FAECAIS
     Indication: PROPHYLAXIS
     Dosage: UNK
     Route: 048
  36. ZINC SULFATE [Concomitant]
     Active Substance: ZINC SULFATE\ZINC SULFATE ANHYDROUS
     Indication: PROPHYLAXIS
     Dosage: UNK
     Route: 065
  37. CLAFORAN [Concomitant]
     Active Substance: CEFOTAXIME SODIUM
     Indication: CEREBRAL HAEMORRHAGE
     Dosage: UNK
     Route: 065
  38. ZITHROMAC [Concomitant]
     Active Substance: AZITHROMYCIN DIHYDRATE
     Indication: MENINGITIS
     Dosage: UNK
     Route: 041
  39. MEROPEN [Concomitant]
     Active Substance: MEROPENEM
     Indication: MENINGITIS
     Dosage: UNK
     Route: 041
  40. ALEVIATIN [Concomitant]
     Active Substance: PHENYTOIN SODIUM
     Indication: PROPHYLAXIS
     Dosage: UNK
     Route: 065
  41. CEFAMEZIN ALPHA [Concomitant]
     Active Substance: CEFAZOLIN SODIUM
     Indication: PROPHYLAXIS
     Dosage: UNK
     Route: 065
  42. MAINTATE [Concomitant]
     Active Substance: BISOPROLOL FUMARATE
     Indication: CEREBRAL HAEMORRHAGE
     Dosage: UNK
     Route: 048
  43. ROMIPLOSTIM [Suspect]
     Active Substance: ROMIPLOSTIM
     Dosage: 4 MUG/KG, QWK
     Route: 058
     Dates: start: 20120630, end: 20120818
  44. PREDONINE [Suspect]
     Active Substance: PREDNISOLONE
     Dosage: 35 MG, UNK
     Route: 048
     Dates: start: 20120703, end: 20120723
  45. PREDONINE [Suspect]
     Active Substance: PREDNISOLONE
     Dosage: 22.5 MG, UNK
     Route: 048
     Dates: start: 20120823, end: 20120907
  46. PREDONINE [Suspect]
     Active Substance: PREDNISOLONE
     Dosage: 17.5 MG, UNK
     Route: 048
     Dates: start: 20120923, end: 20121011
  47. VENILON [Concomitant]
     Active Substance: HUMAN IMMUNOGLOBULIN G
     Indication: IMMUNE THROMBOCYTOPENIC PURPURA
     Dosage: 15 G, UNK
     Route: 042
     Dates: start: 20120329, end: 20120331
  48. DIPRIVAN [Concomitant]
     Active Substance: PROPOFOL
     Indication: CEREBRAL HAEMORRHAGE
     Dosage: UNK
     Route: 042
  49. VANCOMYCIN [Concomitant]
     Active Substance: VANCOMYCIN
     Indication: MENINGITIS
     Dosage: UNK
     Route: 065
  50. FOSMICIN [Concomitant]
     Active Substance: FOSFOMYCIN CALCIUM
     Indication: MENINGITIS
     Dosage: UNK
     Route: 065
  51. VITAMIN C [Concomitant]
     Active Substance: ASCORBIC ACID
     Indication: PROPHYLAXIS
     Dosage: UNK
     Route: 065
  52. ASPARA POTASSIUM [Concomitant]
     Active Substance: POTASSIUM ASPARTATE
     Indication: PROPHYLAXIS
     Dosage: UNK
     Route: 065
  53. MIYA-BM [Concomitant]
     Active Substance: CLOSTRIDIUM BUTYRICUM SPORES STRAIN M-55
     Indication: PROPHYLAXIS
     Dosage: UNK
     Route: 048
  54. PREDONINE [Suspect]
     Active Substance: PREDNISOLONE
     Indication: IMMUNE THROMBOCYTOPENIC PURPURA
     Dosage: 50 MG, UNK
     Route: 048
     Dates: start: 20120303, end: 20120606
  55. PREDONINE [Suspect]
     Active Substance: PREDNISOLONE
     Dosage: 30 MG, UNK
     Route: 048
     Dates: start: 20120724, end: 20120806
  56. PREDONINE [Suspect]
     Active Substance: PREDNISOLONE
     Dosage: 10.0 MG, UNK
     Route: 048
     Dates: start: 20121113, end: 20121126
  57. PREDONINE [Suspect]
     Active Substance: PREDNISOLONE
     Dosage: 6.0 MG, UNK
     Route: 048
     Dates: start: 20130129, end: 20130218
  58. ESLAX [Concomitant]
     Active Substance: ROCURONIUM BROMIDE
     Indication: PROPHYLAXIS
     Dosage: UNK
     Route: 042
  59. PRECEDEX [Concomitant]
     Active Substance: DEXMEDETOMIDINE HYDROCHLORIDE
     Indication: PROPHYLAXIS
     Dosage: UNK
     Route: 042
  60. TELEMINSOFT [Concomitant]
     Active Substance: BISACODYL
     Indication: PROPHYLAXIS
     Dosage: UNK
     Route: 054
  61. ROMIPLOSTIM [Suspect]
     Active Substance: ROMIPLOSTIM
     Dosage: 1 MUG/KG, QWK
     Route: 058
     Dates: start: 20120908, end: 20121124
  62. PREDONINE [Suspect]
     Active Substance: PREDNISOLONE
     Dosage: 25 MG, UNK
     Route: 048
     Dates: start: 20120807, end: 20120822
  63. PREDONINE [Suspect]
     Active Substance: PREDNISOLONE
     Dosage: 20 MG, UNK
     Route: 048
     Dates: start: 20120908, end: 20120922
  64. PREDONINE [Suspect]
     Active Substance: PREDNISOLONE
     Dosage: 15.0 MG, UNK
     Route: 048
     Dates: start: 20121012, end: 20121025
  65. GLYCEREB [Concomitant]
     Indication: CEREBRAL HAEMORRHAGE
     Dosage: UNK
     Route: 041
  66. SALIPEX [Concomitant]
     Indication: CEREBRAL HAEMORRHAGE
     Dosage: UNK
     Route: 065
  67. ZYVOX [Concomitant]
     Active Substance: LINEZOLID
     Indication: MENINGITIS
     Dosage: UNK
     Route: 041

REACTIONS (3)
  - Femur fracture [Recovered/Resolved]
  - Tinea pedis [Recovered/Resolved]
  - Meningitis [Recovered/Resolved]

NARRATIVE: CASE EVENT DATE: 20120512
